FAERS Safety Report 7995835-2 (Version None)
Quarter: 2011Q4

REPORT INFORMATION
  Report Type: 
  Country: None (occurrence: None)
  Receive Date: 20111220
  Receipt Date: 20111212
  Transmission Date: 20120403
  Serious: Yes (Hospitalization, Other)
  Sender: FDA-Public Use
  Company Number: US-NOVOPROD-341228

PATIENT

DRUGS (2)
  1. PREDNISONE TAB [Concomitant]
     Indication: PRODUCT USED FOR UNKNOWN INDICATION
  2. NOVOLOG [Suspect]
     Indication: TYPE 2 DIABETES MELLITUS
     Dosage: UNK UNK, TID
     Route: 058
     Dates: start: 20010101

REACTIONS (5)
  - IMPAIRED GASTRIC EMPTYING [None]
  - DEVICE MALFUNCTION [None]
  - MALNUTRITION [None]
  - INFECTIOUS PERITONITIS [None]
  - BLOOD GLUCOSE INCREASED [None]
